FAERS Safety Report 25667772 (Version 1)
Quarter: 2025Q3

REPORT INFORMATION
  Report Type: Report from Study
  Country: US (occurrence: US)
  Receive Date: 20250812
  Receipt Date: 20250812
  Transmission Date: 20251020
  Serious: Yes (Other)
  Sender: ALEXION PHARMACEUTICALS
  Company Number: US-AstraZeneca-CH-00926882A

PATIENT
  Sex: Female

DRUGS (1)
  1. EPLONTERSEN SODIUM [Suspect]
     Active Substance: EPLONTERSEN SODIUM
     Indication: Acquired ATTR amyloidosis

REACTIONS (4)
  - Pain in extremity [Recovering/Resolving]
  - Burning sensation [Unknown]
  - Neuropathy peripheral [Unknown]
  - Gout [Unknown]
